FAERS Safety Report 5012458-8 (Version None)
Quarter: 2006Q2

REPORT INFORMATION
  Report Type: 
  Country: None (occurrence: None)
  Receive Date: 20060414
  Receipt Date: 20051203
  Transmission Date: 20061013
  Serious: No
  Sender: FDA-Public Use
  Company Number: 2006SP000274

PATIENT
  Age: 73 Year
  Sex: Female
  Weight: 72.5755 kg

DRUGS (6)
  1. LUNESTA [Suspect]
     Indication: INSOMNIA
     Dosage: ORAL
     Route: 048
  2. VESICARE [Concomitant]
  3. ZOLOFT [Concomitant]
  4. DEPAKOTE [Concomitant]
  5. THYROID TAB [Concomitant]
  6. HORMONES AND RELATED AGENTS [Concomitant]

REACTIONS (1)
  - DYSGEUSIA [None]
